FAERS Safety Report 11500071 (Version 1)
Quarter: 2015Q3

REPORT INFORMATION
  Report Type: Spontaneous
  Country: US (occurrence: None)
  Receive Date: 20150910
  Receipt Date: 20150910
  Transmission Date: 20151125
  Serious: Yes (Hospitalization, Other)
  Sender: FDA-Public Use
  Company Number: RAP-0304-2014

PATIENT
  Age: 1 Year
  Sex: Female

DRUGS (1)
  1. PROCYSBI DELAYED-RELEASE [Suspect]
     Active Substance: CYSTEAMINE BITARTRATE
     Indication: CYSTINOSIS
     Route: 048
     Dates: start: 201407

REACTIONS (2)
  - Gastrostomy [None]
  - Drug administered to patient of inappropriate age [None]

NARRATIVE: CASE EVENT DATE: 201407
